FAERS Safety Report 4377367-6 (Version None)
Quarter: 2004Q2

REPORT INFORMATION
  Report Type: 
  Country: None (occurrence: None)
  Receive Date: 20040615
  Receipt Date: 20040519
  Transmission Date: 20050107
  Serious: Yes (Hospitalization)
  Sender: FDA-Public Use
  Company Number: 200411753JP

PATIENT
  Age: 6 Month
  Sex: Female
  Weight: 6.9 kg

DRUGS (5)
  1. CLAFORAN [Suspect]
     Indication: URINARY TRACT INFECTION
     Route: 042
     Dates: start: 20040501, end: 20040506
  2. MUCODYNE [Concomitant]
     Indication: NASOPHARYNGITIS
     Route: 048
     Dates: start: 20040501, end: 20040506
  3. TAVEGYL [Concomitant]
     Indication: NASOPHARYNGITIS
     Route: 048
     Dates: start: 20040501, end: 20040506
  4. ASTOMIN [Concomitant]
     Indication: NASOPHARYNGITIS
     Route: 048
     Dates: start: 20040501, end: 20040506
  5. BIOFERMIN [Concomitant]
     Indication: DIARRHOEA
     Route: 048
     Dates: start: 20040504, end: 20040506

REACTIONS (11)
  - ALANINE AMINOTRANSFERASE INCREASED [None]
  - ASPARTATE AMINOTRANSFERASE INCREASED [None]
  - BILIRUBIN CONJUGATED INCREASED [None]
  - BLOOD ALKALINE PHOSPHATASE INCREASED [None]
  - BLOOD BILIRUBIN UNCONJUGATED INCREASED [None]
  - BLOOD LACTATE DEHYDROGENASE DECREASED [None]
  - CYTOMEGALOVIRUS ANTIBODY POSITIVE [None]
  - EPSTEIN-BARR VIRUS ANTIBODY POSITIVE [None]
  - HEPATIC FUNCTION ABNORMAL [None]
  - PLATELET COUNT DECREASED [None]
  - WHITE BLOOD CELL COUNT INCREASED [None]
